FAERS Safety Report 6610062-9 (Version None)
Quarter: 2010Q1

REPORT INFORMATION
  Report Type: 
  Country: None (occurrence: None)
  Receive Date: 20100302
  Receipt Date: 20100223
  Transmission Date: 20100710
  Serious: Yes (Other)
  Sender: FDA-Public Use
  Company Number: BR-ROCHE-687500

PATIENT
  Age: 58 Year
  Sex: Female

DRUGS (5)
  1. XELODA [Suspect]
     Route: 065
  2. AVASTIN [Concomitant]
  3. FASLODEX [Concomitant]
  4. LISADOR [Concomitant]
  5. LISADOR [Concomitant]

REACTIONS (1)
  - NEUROTOXICITY [None]
